FAERS Safety Report 21665871 (Version 1)
Quarter: 2022Q4

REPORT INFORMATION
  Report Type: Report from Study
  Country: US (occurrence: US)
  Receive Date: 20221201
  Receipt Date: 20221201
  Transmission Date: 20230113
  Serious: Yes (Other)
  Sender: FDA-Public Use
  Company Number: US-GILEAD-2022-0606936

PATIENT
  Age: 37 Year
  Sex: Male

DRUGS (12)
  1. AZTREONAM LYSINE [Suspect]
     Active Substance: AZTREONAM LYSINE
     Indication: Cystic fibrosis gastrointestinal disease
     Dosage: 75 MG, TID, 28/28
     Route: 055
  2. VITAMINS [Concomitant]
     Active Substance: VITAMINS
  3. PULMOZYME [Concomitant]
     Active Substance: DORNASE ALFA
  4. TRIKAFTA [Concomitant]
     Active Substance: ELEXACAFTOR\IVACAFTOR\TEZACAFTOR
  5. VITAMIN D3 [Concomitant]
     Active Substance: CHOLECALCIFEROL
  6. ZENPEP [Concomitant]
     Active Substance: PANCRELIPASE AMYLASE\PANCRELIPASE LIPASE\PANCRELIPASE PROTEASE
  7. TOBRAMYCIN [Concomitant]
     Active Substance: TOBRAMYCIN
  8. MYFORTIC [Concomitant]
     Active Substance: MYCOPHENOLATE SODIUM
  9. ZORTRESS [Concomitant]
     Active Substance: EVEROLIMUS
  10. ALBUTEROL SULFATE [Concomitant]
     Active Substance: ALBUTEROL SULFATE
  11. LABETALOL [Concomitant]
     Active Substance: LABETALOL\LABETALOL HYDROCHLORIDE
  12. SODIUM CHLORIDE [Concomitant]
     Active Substance: SODIUM CHLORIDE

REACTIONS (3)
  - Pulmonary function test decreased [Not Recovered/Not Resolved]
  - Hepatic enzyme increased [Unknown]
  - Pseudomonas infection [Unknown]
